FAERS Safety Report 8057875-7 (Version None)
Quarter: 2012Q1

REPORT INFORMATION
  Report Type: 
  Country: None (occurrence: None)
  Receive Date: 20120120
  Receipt Date: 20111212
  Transmission Date: 20120608
  Serious: No
  Sender: FDA-Public Use
  Company Number: US-BIOGENIDEC-2011BI047044

PATIENT
  Sex: Male

DRUGS (1)
  1. AVONEX [Suspect]
     Indication: MULTIPLE SCLEROSIS
     Route: 030
     Dates: start: 20051010

REACTIONS (10)
  - HEMIPARESIS [None]
  - MUSCLE SPASTICITY [None]
  - DRUG INEFFECTIVE [None]
  - VERTIGO [None]
  - HYPOAESTHESIA [None]
  - FALL [None]
  - INFLUENZA LIKE ILLNESS [None]
  - MYALGIA [None]
  - SPONDYLITIS [None]
  - MULTIPLE SCLEROSIS RELAPSE [None]
